FAERS Safety Report 8097075-8 (Version None)
Quarter: 2012Q1

REPORT INFORMATION
  Report Type: 
  Country: None (occurrence: None)
  Receive Date: 20120131
  Receipt Date: 20120120
  Transmission Date: 20120608
  Serious: Yes (Other)
  Sender: FDA-Public Use
  Company Number: US-AMGEN-USASP2011069161

PATIENT
  Age: 79 Year
  Sex: Male
  Weight: 85.261 kg

DRUGS (36)
  1. PROCRIT [Suspect]
     Dosage: 28000 IU, Q3WK
     Dates: start: 20101123, end: 20101123
  2. PROCRIT [Suspect]
     Dosage: 30000 IU, Q3WK
     Dates: start: 20110204, end: 20110412
  3. ASPIRIN [Concomitant]
     Dosage: 81 MG, QD
     Route: 048
  4. PROCRIT [Suspect]
     Indication: ANAEMIA OF CHRONIC DISEASE
     Dosage: 40000 IU, QWK
     Route: 058
     Dates: start: 20100312, end: 20100512
  5. PROCRIT [Suspect]
     Dosage: 26000 IU, ONE TIME DOSE
     Dates: start: 20111107, end: 20111107
  6. LIPITOR [Concomitant]
     Dosage: 20 MG, QD
     Route: 048
  7. PLAVIX [Concomitant]
     Dosage: 75 MG, QD
     Route: 048
  8. FISH OIL [Concomitant]
     Dosage: 1000 MG, UNK
     Route: 048
  9. PROCRIT [Suspect]
     Dosage: 12000 IU, ONE TIME DOSE
     Dates: start: 20100616, end: 20100616
  10. PROCRIT [Suspect]
     Dosage: 28000 IU, Q2WK
     Dates: start: 20110523, end: 20110606
  11. PROCRIT [Suspect]
     Dosage: 32000 IU, ONE TIME DOSE
     Dates: start: 20110829, end: 20110829
  12. LASIX [Concomitant]
     Dosage: 20 MG, BID
     Route: 048
  13. METOPROLOL TARTRATE [Concomitant]
     Dosage: 50 MG, QD
     Route: 048
  14. KAYEXALATE [Concomitant]
     Dosage: UNK UNK, QID
     Route: 048
  15. COLACE [Concomitant]
     Dosage: 150 MG, QD
     Route: 048
  16. PROCRIT [Suspect]
     Dosage: 30000 IU, ONE TIME DOSE
     Dates: start: 20111212, end: 20111212
  17. LISINOPRIL [Concomitant]
     Dosage: 160 MG, QD
     Route: 048
  18. PROCRIT [Suspect]
     Dosage: 36000 IU, ONE TIME DOSE
     Dates: start: 20101214, end: 20101214
  19. PROCRIT [Suspect]
     Dosage: 20000 IU, QWK
     Dates: start: 20110426, end: 20110516
  20. PROCRIT [Suspect]
     Dosage: 28000 IU, Q3WK
     Dates: start: 20110627, end: 20110718
  21. PROCRIT [Suspect]
     Dosage: 40000 IU, QWK
     Dates: start: 20111227
  22. VITAMIN C                          /00008001/ [Concomitant]
     Dosage: 500 MG, QD
     Dates: start: 20111024
  23. PROCRIT [Suspect]
     Dosage: 15000 IU, ONE TIME DOSE
     Dates: start: 20100630, end: 20100630
  24. PROCRIT [Suspect]
     Dosage: 20000 UNK, UNK
     Dates: start: 20111011, end: 20111017
  25. PROCRIT [Suspect]
     Dosage: 24000 UNK, UNK
     Dates: start: 20111024, end: 20111031
  26. PROCRIT [Suspect]
     Dosage: 30000 UNK, UNK
     Dates: start: 20111121, end: 20111128
  27. FERAHEME [Concomitant]
     Dosage: 510 MG, ONE TIME DOSE
     Route: 042
     Dates: start: 20110606, end: 20110606
  28. PROCRIT [Suspect]
     Dosage: 19000 IU, Q3WK
     Dates: start: 20100908, end: 20100928
  29. PROCRIT [Suspect]
     Dosage: 24000 IU, ONE TIME DOSE
     Dates: start: 20101102, end: 20101102
  30. PROCRIT [Suspect]
     Dosage: 30000 IU, ONE TIME DOSE
     Dates: start: 20110808, end: 20110808
  31. FERAHEME [Concomitant]
     Dosage: 510 MG, UNK
     Route: 042
     Dates: start: 20100527, end: 20100527
  32. PROCRIT [Suspect]
     Indication: NEPHROGENIC ANAEMIA
     Dosage: 15000 IU, Q2WK
     Dates: start: 20100512, end: 20100527
  33. PROCRIT [Suspect]
     Dosage: 16000 IU, Q4WK
     Dates: start: 20100717, end: 20100816
  34. PROCRIT [Suspect]
     Dosage: 22000 IU, Q2WK
     Dates: start: 20101012, end: 20101025
  35. PROCRIT [Suspect]
     Dosage: 36000 IU, ONE TIME DOSE
     Dates: start: 20111207, end: 20111207
  36. PROCRIT [Suspect]
     Dosage: 35000 IU, ONE TIME DOSE
     Dates: start: 20111219, end: 20111219

REACTIONS (3)
  - THERAPEUTIC RESPONSE DECREASED [None]
  - ANAEMIA [None]
  - APLASIA PURE RED CELL [None]
